FAERS Safety Report 9067860 (Version 2)
Quarter: 2013Q1

REPORT INFORMATION
  Report Type: Spontaneous
  Country: US (occurrence: US)
  Receive Date: 20130215
  Receipt Date: 20130318
  Transmission Date: 20140127
  Serious: Yes (Hospitalization)
  Sender: FDA-Public Use
  Company Number: US-BIOGENIDEC-2013BI013666

PATIENT
  Age: 52 Year
  Sex: Male

DRUGS (9)
  1. TYSABRI [Suspect]
     Indication: MULTIPLE SCLEROSIS
     Route: 042
     Dates: start: 20071009
  2. AVONEX [Concomitant]
     Indication: MULTIPLE SCLEROSIS
     Route: 030
  3. MODAFINIL [Concomitant]
     Indication: FATIGUE
  4. BETASEPT [Concomitant]
     Route: 061
  5. PROVENTIL [Concomitant]
  6. LUNESTA [Concomitant]
  7. PRILOSEC [Concomitant]
  8. RESTORIL [Concomitant]
  9. LYSINE [Concomitant]

REACTIONS (8)
  - Sepsis [Recovered/Resolved]
  - Pneumonia [Recovered/Resolved]
  - Malnutrition [Unknown]
  - Decubitus ulcer [Unknown]
  - Urinary tract infection [Recovered/Resolved]
  - Cognitive disorder [Not Recovered/Not Resolved]
  - Memory impairment [Not Recovered/Not Resolved]
  - Confusional state [Recovered/Resolved]
